FAERS Safety Report 8302153-1 (Version None)
Quarter: 2012Q2

REPORT INFORMATION
  Report Type: 
  Country: None (occurrence: None)
  Receive Date: 20120420
  Receipt Date: 20120413
  Transmission Date: 20120825
  Serious: Yes (Other)
  Sender: FDA-Public Use
  Company Number: US-BRISTOL-MYERS SQUIBB COMPANY-16521957

PATIENT

DRUGS (1)
  1. LYSODREN [Suspect]

REACTIONS (1)
  - ENDOTRACHEAL INTUBATION [None]
